FAERS Safety Report 8691290 (Version 3)
Quarter: 2012Q4

REPORT INFORMATION
  Report Type: 
  Country: JP (occurrence: JP)
  Receive Date: 20120730
  Receipt Date: 20120904
  Transmission Date: 20130627
  Serious: Yes (Other)
  Sender: FDA-Public Use
  Company Number: JP-BRISTOL-MYERS SQUIBB COMPANY-16807216

PATIENT
  Age: 34 Year
  Sex: Female

DRUGS (10)
  1. ABILIFY TABS [Suspect]
     Indication: AGGRESSION
     Dosage: 30mg:12Mar-1Ap10(18D),24mg:11mar10,2Ap-19Ap10(18D)23Apr-10Sep,21mg:20Ap10-22Apr10(3D),11Sp-15oc(35D
     Route: 048
     Dates: start: 20100311
  2. ABILIFY TABS [Suspect]
     Indication: DELUSIONAL PERCEPTION
     Dosage: 30mg:12Mar-1Ap10(18D),24mg:11mar10,2Ap-19Ap10(18D)23Apr-10Sep,21mg:20Ap10-22Apr10(3D),11Sp-15oc(35D
     Route: 048
     Dates: start: 20100311
  3. ABILIFY TABS [Suspect]
     Indication: HALLUCINATION, AUDITORY
     Dosage: 30mg:12Mar-1Ap10(18D),24mg:11mar10,2Ap-19Ap10(18D)23Apr-10Sep,21mg:20Ap10-22Apr10(3D),11Sp-15oc(35D
     Route: 048
     Dates: start: 20100311
  4. ABILIFY TABS [Suspect]
     Indication: HALLUCINATION
     Dosage: 30mg:12Mar-1Ap10(18D),24mg:11mar10,2Ap-19Ap10(18D)23Apr-10Sep,21mg:20Ap10-22Apr10(3D),11Sp-15oc(35D
     Route: 048
     Dates: start: 20100311
  5. ABILIFY TABS [Suspect]
     Indication: DELUSION
     Dosage: 30mg:12Mar-1Ap10(18D),24mg:11mar10,2Ap-19Ap10(18D)23Apr-10Sep,21mg:20Ap10-22Apr10(3D),11Sp-15oc(35D
     Route: 048
     Dates: start: 20100311
  6. LITHIUM CARBONATE [Suspect]
     Indication: LOGORRHOEA
     Route: 048
     Dates: start: 20100510, end: 20120608
  7. LITHIUM CARBONATE [Suspect]
     Indication: EUPHORIC MOOD
     Route: 048
     Dates: start: 20100510, end: 20120608
  8. LITHIUM CARBONATE [Suspect]
     Indication: GRANDIOSITY
     Route: 048
     Dates: start: 20100510, end: 20120608
  9. LITHIUM CARBONATE [Suspect]
     Indication: IRRITABILITY
     Route: 048
     Dates: start: 20100510, end: 20120608
  10. TASMOLIN [Concomitant]
     Dosage: tabs
     Dates: start: 20100625, end: 20120608

REACTIONS (3)
  - Abortion spontaneous [Unknown]
  - Pregnancy [Recovered/Resolved]
  - Parkinsonism [Recovering/Resolving]
